FAERS Safety Report 6217084-0 (Version None)
Quarter: 2009Q2

REPORT INFORMATION
  Report Type: 
  Country: None (occurrence: None)
  Receive Date: 20090606
  Receipt Date: 20090526
  Transmission Date: 20091009
  Serious: Yes (Other)
  Sender: FDA-Public Use
  Company Number: US-PFIZER INC-9827753

PATIENT
  Age: 48 Year
  Sex: Male
  Weight: 86.18 kg

DRUGS (4)
  1. VIAGRA [Suspect]
     Indication: ERECTILE DYSFUNCTION
     Dosage: PRN
     Route: 048
     Dates: start: 19980501
  2. DICLOFENAC [Concomitant]
     Route: 048
  3. FELDENE [Concomitant]
     Route: 048
  4. DEPAKOTE [Concomitant]
     Route: 048

REACTIONS (2)
  - NASAL CONGESTION [None]
  - NEOPLASM MALIGNANT [None]
